FAERS Safety Report 24551875 (Version 1)
Quarter: 2024Q4

REPORT INFORMATION
  Report Type: Spontaneous
  Country: US (occurrence: US)
  Receive Date: 20241026
  Receipt Date: 20241026
  Transmission Date: 20250115
  Serious: No
  Sender: AMGEN
  Company Number: US-AMGEN-USASP2024209159

PATIENT
  Age: 34 Year
  Sex: Female

DRUGS (1)
  1. AIMOVIG [Suspect]
     Active Substance: ERENUMAB-AOOE
     Indication: Migraine
     Dosage: 70 MILLIGRAM, QMO
     Route: 058
     Dates: start: 202409

REACTIONS (7)
  - Device difficult to use [Unknown]
  - Accidental exposure to product [Unknown]
  - Injection site pain [Unknown]
  - Injection site extravasation [Unknown]
  - Injection site haemorrhage [Unknown]
  - Incorrect dose administered by device [Unknown]
  - Product communication issue [Unknown]

NARRATIVE: CASE EVENT DATE: 20241020
